FAERS Safety Report 6447290-1 (Version None)
Quarter: 2009Q4

REPORT INFORMATION
  Report Type: 
  Country: None (occurrence: None)
  Receive Date: 20091119
  Receipt Date: 20091109
  Transmission Date: 20100525
  Serious: Yes (Other)
  Sender: FDA-Public Use
  Company Number: GB-PFIZER INC-2009294747

PATIENT
  Age: 6 Year
  Sex: Male
  Weight: 24 kg

DRUGS (3)
  1. METHYLPREDNISOLONE ACETATE AND METHYLPREDNISOLONE AND METHYLPREDNISOLO [Suspect]
     Indication: ACUTE DISSEMINATED ENCEPHALOMYELITIS
     Dosage: 500 MG, UNK
     Route: 042
     Dates: start: 20091102
  2. PARACETAMOL [Concomitant]
  3. TRICLOFOS SODIUM [Concomitant]

REACTIONS (1)
  - PRURITUS [None]
